FAERS Safety Report 4366397-6 (Version None)
Quarter: 2004Q2

REPORT INFORMATION
  Report Type: 
  Country: None (occurrence: None)
  Receive Date: 20040527
  Receipt Date: 20010806
  Transmission Date: 20050107
  Serious: Yes (Other)
  Sender: FDA-Public Use
  Company Number: 20010830025

PATIENT
  Age: 53 Year
  Sex: Male

DRUGS (5)
  1. BMS561390 [Concomitant]
     Indication: HIV INFECTION
     Dosage: 100 OR 200 MG QD ALTERNATING.
     Route: 048
     Dates: start: 20010805, end: 20010805
  2. DIDANOSINE EC [Suspect]
     Indication: HIV INFECTION
     Route: 048
     Dates: start: 20010805, end: 20010805
  3. ABACAVIR SULFATE [Suspect]
     Indication: HIV INFECTION
     Route: 048
     Dates: start: 20010805, end: 20010805
  4. ECSTASY [Concomitant]
     Route: 048
     Dates: start: 20010805, end: 20010805
  5. KEFLEX [Concomitant]
     Dates: start: 20010626

REACTIONS (4)
  - HYPERVENTILATION [None]
  - MYALGIA [None]
  - PYREXIA [None]
  - TREMOR [None]
